FAERS Safety Report 9985166 (Version 1)
Quarter: 2014Q1

REPORT INFORMATION
  Report Type: Report from Study
  Country: US (occurrence: US)
  Receive Date: 20140307
  Receipt Date: 20140307
  Transmission Date: 20141002
  Serious: No
  Sender: FDA-Public Use
  Company Number: US-ABBVIE-14P-163-1185730-00

PATIENT
  Age: 51 Year
  Sex: Male

DRUGS (8)
  1. HUMIRA [Suspect]
     Indication: CROHN^S DISEASE
     Dates: start: 20131127, end: 20131127
  2. HUMIRA [Suspect]
     Dates: start: 20131211, end: 20131211
  3. HUMIRA [Suspect]
     Dates: start: 20131225
  4. PENTASA [Concomitant]
     Indication: CROHN^S DISEASE
  5. DEPAKOTE [Concomitant]
     Indication: BRAIN INJURY
  6. DEPAKOTE [Concomitant]
     Indication: CONVULSION
  7. DILANTIN [Concomitant]
     Indication: BRAIN INJURY
  8. DILANTIN [Concomitant]
     Indication: CONVULSION

REACTIONS (1)
  - Rectal haemorrhage [Not Recovered/Not Resolved]
